FAERS Safety Report 4382961-2 (Version None)
Quarter: 2004Q2

REPORT INFORMATION
  Report Type: 
  Country: None (occurrence: None)
  Receive Date: 20040622
  Receipt Date: 20040318
  Transmission Date: 20050107
  Serious: Yes (Death, Hospitalization)
  Sender: FDA-Public Use
  Company Number: FR-MERCK-0403FRA00077

PATIENT
  Age: 68 Year
  Sex: Male

DRUGS (4)
  1. OMEPRAZOLE [Suspect]
     Indication: PROPHYLAXIS AGAINST GASTROINTESTINAL ULCER
     Route: 048
     Dates: start: 20040308, end: 20040315
  2. PERINDOPRIL [Concomitant]
     Indication: CORONARY ARTERY DISEASE
     Route: 048
     Dates: start: 20040308, end: 20040315
  3. PRAVASTATIN SODIUM [Concomitant]
     Indication: CORONARY ARTERY DISEASE
     Route: 048
     Dates: start: 20040308, end: 20040315
  4. VIOXX [Suspect]
     Indication: CERVICAL ROOT PAIN
     Route: 048
     Dates: start: 20040309, end: 20040315

REACTIONS (5)
  - AGRANULOCYTOSIS [None]
  - CERVICAL ROOT PAIN [None]
  - SEPTIC SHOCK [None]
  - URINARY TRACT INFECTION [None]
  - WHITE BLOOD CELL COUNT DECREASED [None]
